FAERS Safety Report 4758547-4 (Version None)
Quarter: 2005Q3

REPORT INFORMATION
  Report Type: 
  Country: None (occurrence: None)
  Receive Date: 20050826
  Receipt Date: 20050818
  Transmission Date: 20060218
  Serious: Yes (Life-Threatening, Hospitalization)
  Sender: FDA-Public Use
  Company Number: 2005EU001425

PATIENT
  Age: 43 Year
  Sex: Male

DRUGS (10)
  1. FK506(TACROLIMUS) CAPSULES [Suspect]
     Indication: LIVER TRANSPLANT
  2. DACLIZUMAB (DACLIZUMAB) [Suspect]
     Indication: LIVER TRANSPLANT
     Dosage: 200.00 MG, UID/QD, IV NOS
     Route: 042
     Dates: start: 20050305, end: 20050305
  3. MYCOPHENOLATE MOFETIL (MYCOPHENOLATE MOFETIL) [Suspect]
     Indication: LIVER TRANSPLANT
     Dosage: 1000.00 MG, UID/QD, IV NOS
     Route: 042
     Dates: start: 20050305, end: 20050306
  4. METHYLPREDNISOLONE (METHYLPREDNISOLONE) [Suspect]
     Indication: LIVER TRANSPLANT
     Dosage: 250.00 MG, UID/QD
     Dates: start: 20050305, end: 20050306
  5. PREDNISONE [Suspect]
     Indication: LIVER TRANSPLANT
     Dosage: 100.00 UID/QD
     Dates: start: 20050306, end: 20050306
  6. LACTULOSE [Concomitant]
  7. PROPRANOLOL [Concomitant]
  8. PHYTOMENADION (PHYTOMENADIONE) [Concomitant]
  9. IDEOS (COLECALCIFEROL, CALCIUM CARBONATE) [Concomitant]
  10. SPIRONOLACTONE [Concomitant]

REACTIONS (2)
  - HEPATIC ARTERY THROMBOSIS [None]
  - POST PROCEDURAL HAEMORRHAGE [None]
